FAERS Safety Report 25653701 (Version 2)
Quarter: 2025Q3

REPORT INFORMATION
  Report Type: Spontaneous
  Country: EU (occurrence: EU)
  Receive Date: 20250807
  Receipt Date: 20250813
  Transmission Date: 20251020
  Serious: Yes (Other)
  Sender: ORGANON
  Company Number: EU-ORGANON-O2508DEU000361

PATIENT
  Age: 29 Year
  Sex: Female

DRUGS (4)
  1. ETONOGESTREL [Suspect]
     Active Substance: ETONOGESTREL
     Indication: Contraception
     Route: 059
  2. ETONOGESTREL [Suspect]
     Active Substance: ETONOGESTREL
     Route: 059
  3. ETONOGESTREL [Suspect]
     Active Substance: ETONOGESTREL
     Route: 059
  4. COPPER-CONTAINING INTRAUTERINE DEVICE (IUD) [Suspect]
     Active Substance: COPPER

REACTIONS (1)
  - Lyme disease [Unknown]
